FAERS Safety Report 8158373-2 (Version None)
Quarter: 2012Q1

REPORT INFORMATION
  Report Type: 
  Country: None (occurrence: None)
  Receive Date: 20120223
  Receipt Date: 20120214
  Transmission Date: 20120608
  Serious: Yes (Other)
  Sender: FDA-Public Use
  Company Number: IL-PAR PHARMACEUTICAL, INC-2012SCPR004218

PATIENT

DRUGS (5)
  1. RISPERIDONE [Suspect]
     Indication: SCHIZOAFFECTIVE DISORDER
     Dosage: 3 MG, / DAY
     Route: 065
  2. LITHIUM CARBONATE [Concomitant]
     Indication: SCHIZOAFFECTIVE DISORDER
     Dosage: 1500 MG, / DAY
     Route: 065
  3. RISPERIDONE [Suspect]
     Dosage: 5 MG, / DAY
     Route: 065
  4. RISPERIDONE [Suspect]
     Dosage: 8 MG, / DAY
     Route: 065
  5. RISPERIDONE [Suspect]
     Dosage: 3 MG, / DAY
     Route: 065

REACTIONS (4)
  - SOMNOLENCE [None]
  - OROMANDIBULAR DYSTONIA [None]
  - FATIGUE [None]
  - SPASMODIC DYSPHONIA [None]
